FAERS Safety Report 15190330 (Version 3)
Quarter: 2018Q4

REPORT INFORMATION
  Report Type: Spontaneous
  Country: JP (occurrence: JP)
  Receive Date: 20180724
  Receipt Date: 20181018
  Transmission Date: 20190204
  Serious: Yes (Hospitalization, Other)
  Sender: FDA-Public Use
  Company Number: JP-OTSUKA-2018_020937

PATIENT
  Age: 31 Year
  Sex: Male

DRUGS (5)
  1. NITRAZEPAM [Concomitant]
     Active Substance: NITRAZEPAM
     Indication: PRODUCT USED FOR UNKNOWN INDICATION
     Dosage: 2.5 MG, DAILY DOSE
     Route: 048
     Dates: start: 20180601
  2. SYCREST [Concomitant]
     Active Substance: ASENAPINE MALEATE
     Indication: PRODUCT USED FOR UNKNOWN INDICATION
     Dosage: 20 MG, DAILY DOSE
     Route: 048
  3. SYCREST [Concomitant]
     Active Substance: ASENAPINE MALEATE
     Dosage: 10 MG, DAILY DOSE
     Route: 048
     Dates: start: 20180625, end: 20180628
  4. REXULTI [Suspect]
     Active Substance: BREXPIPRAZOLE
     Indication: SCHIZOPHRENIA
     Dosage: 1 MG, DAILY DOSE
     Route: 048
     Dates: start: 20180626, end: 20180628
  5. BELSOMRA [Concomitant]
     Active Substance: SUVOREXANT
     Indication: PRODUCT USED FOR UNKNOWN INDICATION
     Dosage: 15 MG, DAILY DOSE
     Route: 048
     Dates: start: 20180601

REACTIONS (4)
  - Neuroleptic malignant syndrome [Recovering/Resolving]
  - Hyperglycaemia [Recovering/Resolving]
  - Hepatic function abnormal [Not Recovered/Not Resolved]
  - Psychomotor hyperactivity [Not Recovered/Not Resolved]

NARRATIVE: CASE EVENT DATE: 20180629
